FAERS Safety Report 25894268 (Version 1)
Quarter: 2025Q4

REPORT INFORMATION
  Report Type: Spontaneous
  Country: EG (occurrence: EG)
  Receive Date: 20251008
  Receipt Date: 20251008
  Transmission Date: 20260118
  Serious: Yes (Hospitalization, Other)
  Sender: HIKMA
  Company Number: EG-HIKMA PHARMACEUTICALS-EG-H14001-25-10925

PATIENT
  Age: 51 Year
  Sex: Female
  Weight: 64 kg

DRUGS (8)
  1. IRINOTECAN [Suspect]
     Active Substance: IRINOTECAN
     Indication: Pancreatic carcinoma
     Dosage: 288 MILLIGRAM, QOW, OVER 90 MINUTES
     Route: 041
  2. IRINOTECAN [Suspect]
     Active Substance: IRINOTECAN
     Dosage: 288 MILLIGRAM, QOW, OVER 90 MINUTES, DOSE 2
     Route: 041
     Dates: start: 20250816, end: 20250817
  3. LEUCOVORIN CALCIUM [Suspect]
     Active Substance: LEUCOVORIN CALCIUM
     Indication: Pancreatic carcinoma
     Dosage: 640 MILLIGRAM, OVER 2 HOURS FOR 2 DAYS
     Route: 041
  4. LEUCOVORIN CALCIUM [Suspect]
     Active Substance: LEUCOVORIN CALCIUM
     Dosage: 640 MILLIGRAM, OVER 2 HOURS FOR 2 DAYS, DOSE 2
     Route: 041
     Dates: start: 20250816
  5. OXALIPLATIN [Suspect]
     Active Substance: OXALIPLATIN
     Indication: Pancreatic carcinoma
     Dosage: 136 MILLIGRAM, QOW, OVER 2 HOURS
     Route: 041
  6. OXALIPLATIN [Suspect]
     Active Substance: OXALIPLATIN
     Dosage: 136 MILLIGRAM, QOW, OVER 2 HOURS, DOSE 2
     Route: 041
     Dates: start: 20250816
  7. DEXAMETHASONE SODIUM PHOSPHATE [Concomitant]
     Active Substance: DEXAMETHASONE SODIUM PHOSPHATE
     Indication: Chemotherapy side effect prophylaxis
     Dosage: UNK
     Route: 042
  8. EM EX [Concomitant]
     Indication: Chemotherapy side effect prophylaxis
     Dosage: UNK
     Route: 042

REACTIONS (3)
  - Abdominal pain [Not Recovered/Not Resolved]
  - Cholecystitis [Unknown]
  - Biliary colic [Unknown]

NARRATIVE: CASE EVENT DATE: 20250816
